FAERS Safety Report 5850952-8 (Version None)
Quarter: 2008Q3

REPORT INFORMATION
  Report Type: 
  Country: None (occurrence: None)
  Receive Date: 20080820
  Receipt Date: 20080815
  Transmission Date: 20090109
  Serious: Yes (Other)
  Sender: FDA-Public Use
  Company Number: PHHY2008BR18264

PATIENT
  Age: 14 Year
  Sex: Male

DRUGS (8)
  1. TOFRANIL [Suspect]
     Indication: NERVOUSNESS
     Dosage: 1 DF/DAY
     Route: 048
     Dates: start: 20080401, end: 20080808
  2. TOFRANIL [Suspect]
     Indication: AGITATION
     Dosage: UNK
     Route: 048
     Dates: start: 20080815
  3. NEOZINE [Concomitant]
     Indication: SLEEP DISORDER
     Dosage: 40 MG, 12 DROPS BEFORE SLEEPING
     Route: 048
  4. AZITHROMYCIN [Concomitant]
     Indication: LIMB INJURY
     Dosage: 500 MG
     Route: 048
     Dates: start: 20080814
  5. PIROXICAM [Concomitant]
     Indication: LIMB INJURY
     Dosage: 50 MG, 1 TABLET/8 HOURS
     Route: 048
     Dates: start: 20080814
  6. POTASSIUM PERMANGANATE [Concomitant]
     Indication: INJURY
     Dosage: UNK
     Route: 061
     Dates: start: 20080814
  7. PIRACETAM [Concomitant]
     Route: 048
  8. CINNARIZINE [Concomitant]

REACTIONS (6)
  - ABNORMAL BEHAVIOUR [None]
  - CRYING [None]
  - DECREASED ACTIVITY [None]
  - DEPRESSION [None]
  - HALLUCINATION [None]
  - SUICIDAL IDEATION [None]
